FAERS Safety Report 8182810-0 (Version None)
Quarter: 2012Q1

REPORT INFORMATION
  Report Type: 
  Country: None (occurrence: None)
  Receive Date: 20120305
  Receipt Date: 20120227
  Transmission Date: 20120608
  Serious: No
  Sender: FDA-Public Use
  Company Number: US-PFIZER INC-2012057704

PATIENT

DRUGS (1)
  1. VORICONAZOLE [Suspect]
     Indication: ASPERGILLOSIS
     Route: 065

REACTIONS (1)
  - DRUG LEVEL CHANGED [None]
